FAERS Safety Report 22113449 (Version 1)
Quarter: 2023Q1

REPORT INFORMATION
  Report Type: Other
  Country: GB (occurrence: None)
  Receive Date: 20230320
  Receipt Date: 20230320
  Transmission Date: 20230417
  Serious: Yes (Other)
  Sender: FDA-Public Use
  Company Number: GB-ROCHE-1658566

PATIENT
  Age: 52 Year
  Sex: Female

DRUGS (1)
  1. TOCILIZUMAB [Suspect]
     Active Substance: TOCILIZUMAB
     Indication: Rheumatoid arthritis
     Dosage: 648 MG TOTAL MONTHLY DOSE
     Route: 058
     Dates: start: 20150707

REACTIONS (9)
  - Lower respiratory tract infection [Recovered/Resolved]
  - Pharyngitis [Unknown]
  - Bronchitis [Unknown]
  - Diarrhoea infectious [Unknown]
  - Illness [Unknown]
  - Arthralgia [Unknown]
  - Abdominal abscess [Unknown]
  - COVID-19 [Unknown]
  - Arthropod bite [Unknown]
